FAERS Safety Report 4685158-1 (Version None)
Quarter: 2005Q2

REPORT INFORMATION
  Report Type: 
  Country: None (occurrence: None)
  Receive Date: 20050608
  Receipt Date: 20050529
  Transmission Date: 20051028
  Serious: Yes (Other)
  Sender: FDA-Public Use
  Company Number: US-NOVOPROD-244513

PATIENT
  Age: 13 Year
  Sex: Male
  Weight: 37 kg

DRUGS (1)
  1. NORDITROPIN? [Suspect]
     Indication: GROWTH HORMONE DEFICIENCY
     Dosage: 1.6 MG, QD
     Route: 058
     Dates: start: 20050415, end: 20050529

REACTIONS (1)
  - MIGRAINE [None]
